FAERS Safety Report 4891060-2 (Version None)
Quarter: 2006Q1

REPORT INFORMATION
  Report Type: 
  Country: None (occurrence: None)
  Receive Date: 20060123
  Receipt Date: 20060110
  Transmission Date: 20060701
  Serious: Yes (Other)
  Sender: FDA-Public Use
  Company Number: 2006006423

PATIENT
  Age: 72 Year
  Sex: Male
  Weight: 88.905 kg

DRUGS (2)
  1. VIAGRA [Suspect]
     Indication: ILL-DEFINED DISORDER
     Dosage: (50 MG, AS NECESSARY), ORAL
     Route: 048
     Dates: start: 20040102, end: 20050514
  2. CIALIS [Suspect]
     Indication: ILL-DEFINED DISORDER
     Dosage: (AS NECESSARY), ORAL
     Route: 048
     Dates: start: 20050519, end: 20050525

REACTIONS (3)
  - BLINDNESS [None]
  - OPTIC ATROPHY [None]
  - PAPILLITIS [None]
